FAERS Safety Report 9950563 (Version 2)
Quarter: 2014Q1

REPORT INFORMATION
  Report Type: Spontaneous
  Country: US (occurrence: US)
  Receive Date: 20140304
  Receipt Date: 20140318
  Transmission Date: 20141002
  Serious: Yes (Death, Hospitalization, Other)
  Sender: FDA-Public Use
  Company Number: US-GILEAD-2014-0095774

PATIENT
  Age: 75 Year
  Sex: Female

DRUGS (1)
  1. LETAIRIS [Suspect]
     Indication: PULMONARY HYPERTENSION
     Dosage: 10 MG, QD
     Route: 065
     Dates: start: 20130611

REACTIONS (5)
  - Death [Fatal]
  - Mental status changes [Recovering/Resolving]
  - Pneumonia [Unknown]
  - Squamous cell carcinoma of lung [Unknown]
  - Abdominal pain lower [Unknown]
